FAERS Safety Report 25857213 (Version 1)
Quarter: 2025Q3

REPORT INFORMATION
  Report Type: Spontaneous
  Country: EU (occurrence: EU)
  Receive Date: 20250929
  Receipt Date: 20250929
  Transmission Date: 20251020
  Serious: Yes (Hospitalization, Other)
  Sender: AUROBINDO
  Company Number: EU-AEMPS-1752069

PATIENT
  Age: 65 Year
  Sex: Male

DRUGS (3)
  1. DOCETAXEL [Suspect]
     Active Substance: DOCETAXEL
     Indication: Nasal sinus cancer
     Route: 065
     Dates: start: 20230109, end: 20230113
  2. CISPLATIN [Suspect]
     Active Substance: CISPLATIN
     Indication: Nasal sinus cancer
     Route: 065
     Dates: start: 20230109, end: 20230113
  3. FLUOROURACIL [Suspect]
     Active Substance: FLUOROURACIL
     Indication: Nasal sinus cancer
     Route: 065
     Dates: start: 20230109, end: 20230113

REACTIONS (2)
  - Neutropenia [Recovering/Resolving]
  - Diarrhoea [Recovering/Resolving]

NARRATIVE: CASE EVENT DATE: 20230120
